FAERS Safety Report 19015015 (Version 1)
Quarter: 2021Q1

REPORT INFORMATION
  Report Type: Spontaneous
  Country: DE (occurrence: DE)
  Receive Date: 20210316
  Receipt Date: 20210316
  Transmission Date: 20210420
  Serious: Yes (Hospitalization)
  Sender: FDA-Public Use
  Company Number: DE-PFIZER INC-2021266917

PATIENT
  Age: 16 Year
  Sex: Male
  Weight: 81 kg

DRUGS (2)
  1. CANNABIS [Suspect]
     Active Substance: CANNABIS SATIVA SUBSP. INDICA TOP
     Indication: DRUG ABUSE
     Dosage: UNK
  2. ALPRAZOLAM. [Suspect]
     Active Substance: ALPRAZOLAM
     Dosage: DAILY DOSE: 2 MG MILLGRAM(S) EVERY DAYS
     Route: 048
     Dates: start: 20200525, end: 20200525

REACTIONS (5)
  - Depressed level of consciousness [Unknown]
  - Dysarthria [Unknown]
  - Toxicity to various agents [Unknown]
  - Drug abuse [Unknown]
  - Off label use [Unknown]

NARRATIVE: CASE EVENT DATE: 20200525
